FAERS Safety Report 11071431 (Version 1)
Quarter: 2015Q2

REPORT INFORMATION
  Report Type: Spontaneous
  Country: None (occurrence: None)
  Receive Date: 20150427
  Receipt Date: 20150427
  Transmission Date: 20150821
  Serious: No
  Sender: FDA-Public Use
  Company Number: None

PATIENT
  Age: 56 Year
  Sex: Female
  Weight: 77.11 kg

DRUGS (9)
  1. FARXIGA [Suspect]
     Active Substance: DAPAGLIFLOZIN PROPANEDIOL
     Dates: start: 20150328, end: 20150329
  2. ATORVASTATIN [Concomitant]
     Active Substance: ATORVASTATIN
  3. LINZESS [Concomitant]
     Active Substance: LINACLOTIDE
  4. REGLAN [Concomitant]
     Active Substance: METOCLOPRAMIDE HYDROCHLORIDE
  5. FENOFIBRATE. [Concomitant]
     Active Substance: FENOFIBRATE
  6. ASA [Concomitant]
     Active Substance: ASPIRIN
  7. PRISTIQ EXTENDED RELEASE [Concomitant]
     Active Substance: DESVENLAFAXINE SUCCINATE
  8. ZINC [Concomitant]
     Active Substance: ZINC\ZINC CHLORIDE
  9. LEVOTHYROXIN [Concomitant]
     Active Substance: LEVOTHYROXINE

REACTIONS (5)
  - Hyperventilation [None]
  - Panic attack [None]
  - Anxiety [None]
  - Fear [None]
  - Cheyne-Stokes respiration [None]

NARRATIVE: CASE EVENT DATE: 20150329
